FAERS Safety Report 7468524-0 (Version None)
Quarter: 2011Q2

REPORT INFORMATION
  Report Type: 
  Country: None (occurrence: None)
  Receive Date: 20110509
  Receipt Date: 20110503
  Transmission Date: 20111010
  Serious: Yes (Hospitalization, Other)
  Sender: FDA-Public Use
  Company Number: US-RB-026050-11

PATIENT
  Age: 26 Year
  Sex: Female

DRUGS (1)
  1. SUBOXONE [Suspect]
     Indication: PRODUCT USED FOR UNKNOWN INDICATION
     Dosage: SUBLINGUAL FILM; DOSING INFORMATION UNKNOWN

REACTIONS (11)
  - MUSCLE SPASMS [None]
  - OFF LABEL USE [None]
  - ASTHENIA [None]
  - DRUG WITHDRAWAL SYNDROME [None]
  - HYPOAESTHESIA ORAL [None]
  - GLOSSODYNIA [None]
  - NIGHT SWEATS [None]
  - SUDDEN ONSET OF SLEEP [None]
  - PAIN [None]
  - OVARIAN CYST RUPTURED [None]
  - PAIN IN EXTREMITY [None]
